FAERS Safety Report 15138820 (Version 1)
Quarter: 2018Q3

REPORT INFORMATION
  Report Type: Spontaneous
  Country: FR (occurrence: FR)
  Receive Date: 20180713
  Receipt Date: 20180713
  Transmission Date: 20181010
  Serious: Yes (Disabling)
  Sender: FDA-Public Use
  Company Number: FR-MERCK KGAA-2051938

PATIENT
  Age: 50 Year
  Sex: Female

DRUGS (1)
  1. NOVOTHYROX [Suspect]
     Active Substance: LEVOTHYROXINE SODIUM
     Indication: PRODUCT USED FOR UNKNOWN INDICATION
     Dates: start: 201704

REACTIONS (22)
  - Impaired work ability [None]
  - Epistaxis [None]
  - Vertigo [None]
  - Arthralgia [None]
  - Blood thyroid stimulating hormone abnormal [None]
  - Headache [None]
  - Blood creatine increased [None]
  - Disturbance in attention [None]
  - Irritability [None]
  - Gamma-glutamyltransferase increased [None]
  - Abdominal pain [None]
  - Memory impairment [None]
  - Nervousness [None]
  - Dizziness [None]
  - Mean cell haemoglobin increased [None]
  - Muscle spasms [None]
  - Blood cholesterol increased [None]
  - Weight increased [None]
  - Blood thyroid stimulating hormone increased [Not Recovered/Not Resolved]
  - Disability [None]
  - Mean cell volume increased [None]
  - Blood triglycerides increased [None]

NARRATIVE: CASE EVENT DATE: 2017
